FAERS Safety Report 15851596 (Version 4)
Quarter: 2021Q2

REPORT INFORMATION
  Report Type: Spontaneous
  Country: GB (occurrence: GB)
  Receive Date: 20190122
  Receipt Date: 20210609
  Transmission Date: 20210716
  Serious: Yes (Life-Threatening, Hospitalization, Other)
  Sender: FDA-Public Use
  Company Number: GB-009507513-0509USA01962

PATIENT
  Age: 60 Year
  Sex: Male

DRUGS (3)
  1. RANITIDINE. [Concomitant]
     Active Substance: RANITIDINE
     Dosage: UNK
  2. ACETYLSALICYLIC ACID [Concomitant]
     Active Substance: ASPIRIN
     Dosage: UNK
  3. LISINOPRIL. [Suspect]
     Active Substance: LISINOPRIL
     Dosage: UNK
     Route: 048

REACTIONS (16)
  - Angioedema [Recovered/Resolved]
  - Pneumothorax [Recovered/Resolved]
  - Laryngeal oedema [Recovered/Resolved]
  - Tachycardia [Recovered/Resolved]
  - Cyanosis [Recovered/Resolved]
  - Subcutaneous emphysema [Recovered/Resolved]
  - Dyspnoea [Recovered/Resolved]
  - Haemorrhage [Not Recovered/Not Resolved]
  - Post procedural complication [Recovered/Resolved]
  - Acute myocardial infarction [Recovered/Resolved]
  - Oxygen saturation decreased [Recovered/Resolved]
  - Respiratory distress [Recovered/Resolved]
  - Stridor [Recovered/Resolved]
  - Pneumopericardium [Recovered/Resolved]
  - Agitation [Recovered/Resolved]
  - Wheezing [Recovered/Resolved]
